FAERS Safety Report 7487093-2 (Version None)
Quarter: 2011Q2

REPORT INFORMATION
  Report Type: 
  Country: None (occurrence: None)
  Receive Date: 20110509
  Receipt Date: 20110428
  Transmission Date: 20111010
  Serious: No
  Sender: FDA-Public Use
  Company Number: 2011SP005878

PATIENT
  Sex: Female

DRUGS (8)
  1. OROMONE [Concomitant]
  2. ESBERIVEN [Concomitant]
  3. TOCOPHEROL CONCENTRATE CAP [Concomitant]
  4. CHORIONIC GONADOTROPIN [Suspect]
     Indication: ASSISTED FERTILISATION
     Dates: start: 20100329
  5. CHORIONIC GONADOTROPIN [Suspect]
     Indication: ASSISTED FERTILISATION
     Dates: start: 20100407
  6. CHORIONIC GONADOTROPIN [Suspect]
     Indication: ASSISTED FERTILISATION
     Dates: start: 20100404
  7. ORAVIR [Concomitant]
  8. PROGESTERONE [Concomitant]

REACTIONS (9)
  - INJECTION SITE PAIN [None]
  - UNEVALUABLE EVENT [None]
  - NAUSEA [None]
  - ABORTION SPONTANEOUS [None]
  - DRUG EXPOSURE BEFORE PREGNANCY [None]
  - DIZZINESS [None]
  - PREGNANCY [None]
  - IMMUNE SYSTEM DISORDER [None]
  - MIGRAINE [None]
